FAERS Safety Report 24337564 (Version 1)
Quarter: 2024Q3

REPORT INFORMATION
  Report Type: Spontaneous
  Country: SA (occurrence: SA)
  Receive Date: 20240919
  Receipt Date: 20240919
  Transmission Date: 20241017
  Serious: No
  Sender: ROCHE
  Company Number: SA-ROCHE-3459335

PATIENT
  Age: 34 Year
  Sex: Male

DRUGS (10)
  1. OSELTAMIVIR [Suspect]
     Active Substance: OSELTAMIVIR
     Indication: COVID-19
     Route: 065
  2. RIBAVIRIN [Suspect]
     Active Substance: RIBAVIRIN
     Indication: COVID-19
     Route: 065
  3. CEFTRIAXONE [Suspect]
     Active Substance: CEFTRIAXONE\CEFTRIAXONE SODIUM
     Indication: COVID-19
     Route: 065
  4. AZITHROMYCIN [Concomitant]
     Active Substance: AZITHROMYCIN
     Indication: COVID-19
  5. LOPINAVIR [Concomitant]
     Active Substance: LOPINAVIR
     Indication: COVID-19
  6. HYDROXYCHLOROQUINE [Concomitant]
     Active Substance: HYDROXYCHLOROQUINE
     Indication: COVID-19
  7. PREDNISOLONE [Concomitant]
     Active Substance: PREDNISOLONE
     Indication: COVID-19
  8. CLINDAMYCIN [Concomitant]
     Active Substance: CLINDAMYCIN
     Indication: COVID-19
  9. INTERFERON BETA [Concomitant]
     Active Substance: INTERFERON BETA
     Indication: COVID-19
  10. CEFTAZIDIME [Concomitant]
     Active Substance: CEFTAZIDIME
     Indication: COVID-19

REACTIONS (2)
  - Off label use [Unknown]
  - No adverse event [Unknown]
